FAERS Safety Report 5173140-X (Version None)
Quarter: 2006Q4

REPORT INFORMATION
  Report Type: 
  Country: None (occurrence: None)
  Receive Date: 20061207
  Receipt Date: 20061207
  Transmission Date: 20070319
  Serious: Yes (Hospitalization)
  Sender: FDA-Public Use
  Company Number: None

PATIENT
  Age: 37 Year
  Sex: Female
  Weight: 65 kg

DRUGS (1)
  1. METRONIDAZOLE [Suspect]
     Indication: VAGINAL INFECTION
     Dates: start: 20061201, end: 20061205

REACTIONS (6)
  - BODY TEMPERATURE INCREASED [None]
  - COUGH [None]
  - LEUKOCYTOCLASTIC VASCULITIS [None]
  - OEDEMA [None]
  - OLIGURIA [None]
  - RASH MACULO-PAPULAR [None]
